FAERS Safety Report 13741596 (Version 1)
Quarter: 2017Q3

REPORT INFORMATION
  Report Type: Spontaneous
  Country: US (occurrence: US)
  Receive Date: 20170711
  Receipt Date: 20170711
  Transmission Date: 20171127
  Serious: Yes (Hospitalization)
  Sender: FDA-Public Use
  Company Number: None

PATIENT
  Age: 29 Year
  Sex: Female
  Weight: 74.84 kg

DRUGS (2)
  1. CARBOPLATIN. [Suspect]
     Active Substance: CARBOPLATIN
     Dates: end: 20170602
  2. DOXIL [Suspect]
     Active Substance: DOXORUBICIN HYDROCHLORIDE
     Dates: end: 20170602

REACTIONS (3)
  - Pyrexia [None]
  - Anaemia [None]
  - Neutrophil count decreased [None]

NARRATIVE: CASE EVENT DATE: 20170628
